FAERS Safety Report 5221533-4 (Version None)
Quarter: 2007Q1

REPORT INFORMATION
  Report Type: 
  Country: None (occurrence: None)
  Receive Date: 20070127
  Receipt Date: 20070118
  Transmission Date: 20070707
  Serious: Yes (Hospitalization)
  Sender: FDA-Public Use
  Company Number: JP-ABBOTT-07P-087-0356234-00

PATIENT
  Age: 43 Year
  Sex: Male

DRUGS (2)
  1. CEFZON CAPSULE [Suspect]
     Indication: NASOPHARYNGITIS
     Route: 048
     Dates: start: 20061216, end: 20061217
  2. PL GRAN. [Concomitant]
     Indication: DRUG USE FOR UNKNOWN INDICATION
     Dates: start: 20061216

REACTIONS (2)
  - URTICARIA [None]
  - VARICELLA [None]
